FAERS Safety Report 5422324-1 (Version None)
Quarter: 2007Q3

REPORT INFORMATION
  Report Type: 
  Country: None (occurrence: None)
  Receive Date: 20070820
  Receipt Date: 20070806
  Transmission Date: 20080115
  Serious: Yes (Life-Threatening, Hospitalization, Other)
  Sender: FDA-Public Use
  Company Number: 2007RL000349

PATIENT
  Age: 16 Year
  Sex: Female

DRUGS (3)
  1. PROPAFENONE HCL [Suspect]
     Indication: DRUG USE FOR UNKNOWN INDICATION
     Dosage: 4500 MG; X1; PO
     Route: 048
  2. WARFARIN SODIUM [Suspect]
     Indication: DRUG USE FOR UNKNOWN INDICATION
     Dosage: 160 MG; X1; PO
     Route: 048
  3. DIGOXIN [Suspect]
     Indication: DRUG USE FOR UNKNOWN INDICATION
     Dosage: 5 MG; X1; PO
     Route: 048

REACTIONS (6)
  - CARDIOTOXICITY [None]
  - CENTRAL VENOUS PRESSURE DECREASED [None]
  - INTERNATIONAL NORMALISED RATIO INCREASED [None]
  - MULTIPLE DRUG OVERDOSE [None]
  - SINUS BRADYCARDIA [None]
  - SUICIDE ATTEMPT [None]
